FAERS Safety Report 7775016-8 (Version None)
Quarter: 2011Q3

REPORT INFORMATION
  Report Type: 
  Country: None (occurrence: None)
  Receive Date: 20110923
  Receipt Date: 20110915
  Transmission Date: 20111222
  Serious: Yes (Disabling, Other)
  Sender: FDA-Public Use
  Company Number: BR-ASTRAZENECA-2011SE56075

PATIENT
  Age: 67 Year
  Sex: Female

DRUGS (5)
  1. LIPLESS [Concomitant]
     Route: 048
  2. METOPROLOL SUCCINATE [Suspect]
     Route: 048
     Dates: start: 20110801
  3. BENICAR HCT [Concomitant]
     Route: 048
     Dates: start: 20100101, end: 20110801
  4. ADALAT [Concomitant]
     Route: 048
  5. METOPROLOL SUCCINATE [Suspect]
     Indication: HYPERTENSION
     Route: 048
     Dates: end: 20110801

REACTIONS (3)
  - RETINAL VASCULAR OCCLUSION [None]
  - BLINDNESS UNILATERAL [None]
  - INAPPROPRIATE SCHEDULE OF DRUG ADMINISTRATION [None]
